FAERS Safety Report 6179605-6 (Version None)
Quarter: 2009Q2

REPORT INFORMATION
  Report Type: 
  Country: None (occurrence: None)
  Receive Date: 20090505
  Receipt Date: 20090423
  Transmission Date: 20091009
  Serious: Yes (Other)
  Sender: FDA-Public Use
  Company Number: IE-PFIZER INC-2009202876

PATIENT

DRUGS (12)
  1. ZYVOX [Suspect]
     Indication: INFECTION
     Dosage: 600 MG, 1X/DAY
     Route: 048
     Dates: start: 20081127, end: 20090218
  2. PRAVASTATIN [Concomitant]
  3. GALFER [Concomitant]
  4. DILTIAZEM [Concomitant]
  5. ESOMEPRAZOLE [Concomitant]
  6. PARACETAMOL [Concomitant]
  7. CLEXANE [Concomitant]
     Dosage: UNK
  8. CALCICHEW-D3 [Concomitant]
  9. CENTRUM [Concomitant]
  10. ENSURE [Concomitant]
  11. CALOGEN [Concomitant]
  12. ASPIRIN [Concomitant]

REACTIONS (2)
  - HAEMATOCRIT DECREASED [None]
  - LEUKOERYTHROBLASTIC ANAEMIA [None]
